FAERS Safety Report 16942654 (Version 4)
Quarter: 2020Q3

REPORT INFORMATION
  Report Type: Report from Study
  Country: US (occurrence: US)
  Receive Date: 20191021
  Receipt Date: 20200819
  Transmission Date: 20201102
  Serious: Yes (Hospitalization)
  Sender: FDA-Public Use
  Company Number: US-ACTELION-A-NJ2019-196987

PATIENT
  Age: 20 Year
  Sex: Female
  Weight: 38.55 kg

DRUGS (4)
  1. OPSUMIT [Suspect]
     Active Substance: MACITENTAN
     Indication: PULMONARY ARTERIAL HYPERTENSION
     Dosage: 10 MG, QD
     Route: 048
     Dates: start: 20190522
  2. LATANOPROST. [Concomitant]
     Active Substance: LATANOPROST
     Dosage: UNK
  3. SILDENAFIL CITRATE. [Concomitant]
     Active Substance: SILDENAFIL CITRATE
     Dosage: 10 MG, QD
  4. RANITIDINE. [Concomitant]
     Active Substance: RANITIDINE
     Dosage: 150 MG, PRN

REACTIONS (8)
  - Developmental delay [Unknown]
  - Wisdom teeth removal [Recovered/Resolved]
  - Cerebrovascular accident [Recovering/Resolving]
  - Polycythaemia [Unknown]
  - Right-to-left cardiac shunt [Unknown]
  - Hemiparesis [Recovering/Resolving]
  - Carotid artery occlusion [Recovered/Resolved]
  - Glaucoma [Unknown]

NARRATIVE: CASE EVENT DATE: 20191002
